FAERS Safety Report 25953338 (Version 2)
Quarter: 2025Q4

REPORT INFORMATION
  Report Type: Report from Study
  Country: US (occurrence: US)
  Receive Date: 20251023
  Receipt Date: 20251030
  Transmission Date: 20260118
  Serious: No
  Sender: MALLINCKRODT
  Company Number: US-MALLINCKRODT-MNK202506480

PATIENT
  Age: 4 Month
  Sex: Female
  Weight: 4 kg

DRUGS (2)
  1. CORTICOTROPIN [Suspect]
     Active Substance: CORTICOTROPIN
     Indication: Infantile spasms
     Dates: start: 20251007, end: 202510
  2. CORTICOTROPIN [Suspect]
     Active Substance: CORTICOTROPIN
     Dates: start: 202510

REACTIONS (3)
  - Anger [Unknown]
  - Irritability [Unknown]
  - Injection site pain [Unknown]

NARRATIVE: CASE EVENT DATE: 20251001
